FAERS Safety Report 11622931 (Version 1)
Quarter: 2015Q4

REPORT INFORMATION
  Report Type: Spontaneous
  Country: US (occurrence: None)
  Receive Date: 20151009
  Receipt Date: 20151009
  Transmission Date: 20160304
  Serious: Yes (Disabling)
  Sender: FDA-Public Use
  Company Number: None

PATIENT
  Age: 59 Year
  Sex: Female
  Weight: 74.84 kg

DRUGS (1)
  1. GABAPENTIN 300 MG [Suspect]
     Active Substance: GABAPENTIN
     Indication: NEURALGIA
     Dates: start: 20080326, end: 20080327

REACTIONS (21)
  - Hyperhidrosis [None]
  - Chromatopsia [None]
  - Musculoskeletal stiffness [None]
  - Eye pain [None]
  - Inappropriate affect [None]
  - Chills [None]
  - Muscle rigidity [None]
  - Vision blurred [None]
  - Ocular hyperaemia [None]
  - Tic [None]
  - Tremor [None]
  - Arthropathy [None]
  - Crying [None]
  - Tardive dyskinesia [None]
  - Dyskinesia [None]
  - Restlessness [None]
  - Fall [None]
  - Movement disorder [None]
  - Paraesthesia [None]
  - Burning sensation [None]
  - Balance disorder [None]

NARRATIVE: CASE EVENT DATE: 20080327
